FAERS Safety Report 9563852 (Version 1)
Quarter: 2013Q3

REPORT INFORMATION
  Report Type: Spontaneous
  Country: US (occurrence: None)
  Receive Date: 20130926
  Receipt Date: 20130926
  Transmission Date: 20140515
  Serious: No
  Sender: FDA-Public Use
  Company Number: None

PATIENT
  Age: 55 Year
  Sex: Male
  Weight: 67.13 kg

DRUGS (1)
  1. ABILIFY [Suspect]
     Indication: ANTIDEPRESSANT THERAPY
     Dosage: 1, ONCE DAILY, TAKEN BY MOUTH
     Route: 048
     Dates: start: 20130906, end: 20130924

REACTIONS (5)
  - Pollakiuria [None]
  - Dysuria [None]
  - Urinary retention [None]
  - Sleep disorder [None]
  - Insomnia [None]
